FAERS Safety Report 7959982-3 (Version None)
Quarter: 2011Q4

REPORT INFORMATION
  Report Type: 
  Country: None (occurrence: None)
  Receive Date: 20111206
  Receipt Date: 20111128
  Transmission Date: 20120403
  Serious: Yes (Hospitalization)
  Sender: FDA-Public Use
  Company Number: CHPA2011US016927

PATIENT
  Age: 48 Year
  Sex: Female

DRUGS (1)
  1. MAALOX ADV MAXIMUM STRENGTH ANTACID/ANTIGAS [Suspect]
     Indication: GASTROOESOPHAGEAL REFLUX DISEASE
     Dosage: 4 TSP, QHS
     Route: 048
     Dates: start: 20110101

REACTIONS (4)
  - FOOD POISONING [None]
  - THERAPEUTIC RESPONSE UNEXPECTED [None]
  - GASTRIC MUCOSA ERYTHEMA [None]
  - OFF LABEL USE [None]
